FAERS Safety Report 7132639-7 (Version None)
Quarter: 2010Q4

REPORT INFORMATION
  Report Type: 
  Country: None (occurrence: None)
  Receive Date: 20101202
  Receipt Date: 20101125
  Transmission Date: 20110411
  Serious: Yes (Hospitalization)
  Sender: FDA-Public Use
  Company Number: VN-B.I. PHARMACEUTICALS,INC./RIDGEFIELD-2010-DE-06607GD

PATIENT
  Age: 29 Year
  Sex: Male

DRUGS (4)
  1. NEVIRAPINE [Suspect]
     Indication: HIV INFECTION
     Dates: start: 20090101
  2. ZIDOVUDINE [Suspect]
     Indication: HIV INFECTION
     Dates: start: 20090101
  3. LAMIVUDINE [Suspect]
     Indication: HIV INFECTION
     Dates: start: 20090101
  4. COTRIMOXAZOLE [Concomitant]
     Indication: PROPHYLAXIS

REACTIONS (7)
  - CRYPTOCOCCOSIS [None]
  - HEADACHE [None]
  - IMMUNE RECONSTITUTION SYNDROME [None]
  - ORAL CANDIDIASIS [None]
  - PENICILLIOSIS [None]
  - PYREXIA [None]
  - VOMITING [None]
